FAERS Safety Report 12545460 (Version 5)
Quarter: 2016Q4

REPORT INFORMATION
  Report Type: Spontaneous
  Country: BR (occurrence: BR)
  Receive Date: 20160711
  Receipt Date: 20161206
  Transmission Date: 20170207
  Serious: Yes (Hospitalization, Other)
  Sender: FDA-Public Use
  Company Number: PHHY2016BR091375

PATIENT
  Age: 13 Year
  Sex: Male
  Weight: 81 kg

DRUGS (3)
  1. PROPAFENONE. [Suspect]
     Active Substance: PROPAFENONE
     Indication: CARDIAC DISORDER
     Dosage: HALF TABLET EVERY 12 HOURS
     Route: 065
     Dates: start: 201609
  2. ATENOLOL SANDOZ [Suspect]
     Active Substance: ATENOLOL
     Indication: VENTRICULAR TACHYCARDIA
     Dosage: 25 MG
     Route: 065
  3. ATENOLOL SANDOZ [Suspect]
     Active Substance: ATENOLOL
     Dosage: 50 MG, QD
     Route: 048
     Dates: start: 201608

REACTIONS (1)
  - Hypertensive crisis [Recovered/Resolved]

NARRATIVE: CASE EVENT DATE: 20160925
